FAERS Safety Report 5228862-9 (Version None)
Quarter: 2007Q1

REPORT INFORMATION
  Report Type: 
  Country: None (occurrence: None)
  Receive Date: 20070205
  Receipt Date: 20070116
  Transmission Date: 20070707
  Serious: Yes (Hospitalization, Other)
  Sender: FDA-Public Use
  Company Number: AU-BRISTOL-MYERS SQUIBB COMPANY-13154968

PATIENT
  Age: 64 Year
  Sex: Male

DRUGS (6)
  1. EFAVIRENZ [Suspect]
     Indication: HIV INFECTION
     Route: 048
     Dates: start: 20031001, end: 20040901
  2. ATAZANAVIR [Suspect]
     Indication: HIV INFECTION
     Dosage: IN NOV-2004, THERAPY WAS DECREASED TO 300 MG.
     Dates: start: 20031001
  3. TENOFOVIR [Suspect]
     Indication: HIV INFECTION
     Dates: start: 20031001
  4. LAMIVUDINE [Suspect]
     Indication: HIV INFECTION
     Dates: start: 20031001
  5. AMLODIPINE [Concomitant]
     Indication: HYPERTENSION
     Dates: start: 20040701, end: 20040901
  6. IRBESARTAN + HYDROCHLOROTHIAZIDE [Concomitant]
     Indication: HYPERTENSION
     Dates: start: 20040901

REACTIONS (5)
  - COGNITIVE DISORDER [None]
  - GLOMERULAR VASCULAR DISORDER [None]
  - HYPERTENSION [None]
  - NEPHROPATHY TOXIC [None]
  - PROTEINURIA [None]
